FAERS Safety Report 19889659 (Version 2)
Quarter: 2021Q4

REPORT INFORMATION
  Report Type: Spontaneous
  Country: CZ (occurrence: CZ)
  Receive Date: 20210927
  Receipt Date: 20211006
  Transmission Date: 20220304
  Serious: Yes (Other)
  Sender: FDA-Public Use
  Company Number: CZ-002147023-NVSC2021CZ101741

PATIENT
  Age: 55 Year
  Sex: Female

DRUGS (2)
  1. SUMATRIPTAN [Suspect]
     Active Substance: SUMATRIPTAN
     Indication: Headache
     Dosage: 100 MG, (2-3X DAILY)
     Route: 065
  2. SUMATRIPTAN [Suspect]
     Active Substance: SUMATRIPTAN
     Indication: Migraine

REACTIONS (4)
  - Intracranial aneurysm [Unknown]
  - Meningeal disorder [Unknown]
  - Blood pressure increased [Unknown]
  - Vasospasm [Unknown]
